FAERS Safety Report 9082873 (Version 1)
Quarter: 2013Q1

REPORT INFORMATION
  Report Type: Report from Study
  Country: US (occurrence: US)
  Receive Date: 20130131
  Receipt Date: 20130131
  Transmission Date: 20140127
  Serious: No
  Sender: FDA-Public Use
  Company Number: US-ABBOTT-12P-163-0989497-00

PATIENT
  Age: 59 Year
  Sex: Male

DRUGS (7)
  1. HUMIRA [Suspect]
     Indication: CROHN^S DISEASE
     Dates: start: 20120115
  2. ASACOL [Concomitant]
     Indication: CROHN^S DISEASE
     Dosage: 6 PILLS DAILY
  3. GENERIC PRILOSEC [Concomitant]
     Indication: GASTROOESOPHAGEAL REFLUX DISEASE
  4. DICYCLOMINE [Concomitant]
     Indication: CROHN^S DISEASE
  5. LISINOPRIL [Concomitant]
     Indication: HYPERTENSION
     Dosage: 40MG DAILY
  6. HYDROCHLOROTH [Concomitant]
     Indication: FLUID RETENTION
     Dosage: 25MG DAILY
  7. SIMVASTATIN [Concomitant]
     Indication: BLOOD CHOLESTEROL
     Dosage: 20MG DAILY

REACTIONS (3)
  - Dysphonia [Unknown]
  - Rash [Not Recovered/Not Resolved]
  - Cough [Unknown]
